FAERS Safety Report 14327752 (Version 6)
Quarter: 2018Q3

REPORT INFORMATION
  Report Type: Spontaneous
  Country: PR (occurrence: PR)
  Receive Date: 20171227
  Receipt Date: 20180726
  Transmission Date: 20181010
  Serious: Yes (Death, Other)
  Sender: FDA-Public Use
  Company Number: PR-PFIZER INC-2017547327

PATIENT
  Age: 78 Year
  Sex: Female
  Weight: 59 kg

DRUGS (3)
  1. INLYTA [Suspect]
     Active Substance: AXITINIB
     Indication: RENAL CANCER
     Dosage: 5 MG, DAILY
     Route: 048
     Dates: start: 20160331
  2. INLYTA [Suspect]
     Active Substance: AXITINIB
     Dosage: 5 MG, 2X/DAY
     Route: 048
     Dates: start: 20171017
  3. INLYTA [Suspect]
     Active Substance: AXITINIB
     Dosage: UNK

REACTIONS (10)
  - Blindness [Unknown]
  - Pain [Unknown]
  - Death [Fatal]
  - Decreased appetite [Unknown]
  - Abdominal pain [Unknown]
  - Hypoaesthesia [Unknown]
  - Constipation [Unknown]
  - Pain in extremity [Unknown]
  - Back pain [Unknown]
  - Fall [Unknown]

NARRATIVE: CASE EVENT DATE: 20180710
